FAERS Safety Report 10070360 (Version 3)
Quarter: 2014Q2

REPORT INFORMATION
  Report Type: Spontaneous
  Country: US (occurrence: US)
  Receive Date: 20140410
  Receipt Date: 20140530
  Transmission Date: 20141212
  Serious: Yes (Other)
  Sender: FDA-Public Use
  Company Number: US-PFIZER INC-2014098982

PATIENT
  Age: 72 Year
  Sex: Male
  Weight: 68.03 kg

DRUGS (13)
  1. GABAPENTIN [Suspect]
     Indication: DIABETIC NEUROPATHY
     Dosage: 1200 MG,  DAILY
     Route: 048
  2. GABAPENTIN [Suspect]
     Indication: ANXIETY
     Dosage: UNK (ONE 300 MG CAPSULE IN THE MORNING, ONE 300 MG CAPSULE AT NOON AND 600 MG AT BED TIME), 3X/DAY
  3. GLIMEPIRIDE [Concomitant]
     Indication: DIABETES MELLITUS
     Dosage: 5 MG, DAILY
  4. GLIMEPIRIDE [Concomitant]
     Dosage: 1 MG, DAILY
  5. ATENOLOL [Concomitant]
     Indication: HYPERTENSION
     Dosage: 50 MG, DAILY
  6. ATENOLOL [Concomitant]
     Dosage: 25 MG, DAILY
  7. LEVOTHYROXINE [Concomitant]
     Indication: HYPOTHYROIDISM
     Dosage: 50 UG, DAILY
  8. LEVOTHYROXINE [Concomitant]
     Dosage: 150 UG, DAILY
  9. SIMVASTATIN [Concomitant]
     Dosage: 40 MG, DAILY
  10. ATIVAN [Concomitant]
     Dosage: UNK
  11. ACIDOPHILUS [Concomitant]
     Dosage: UNK
  12. AMITRIPTYLINE [Concomitant]
     Indication: DEPRESSION
     Dosage: 100 MG, DAILY
  13. LORAZEPAM [Concomitant]
     Dosage: UNK, 3X/DAY

REACTIONS (3)
  - Angina pectoris [Unknown]
  - Cataract [Unknown]
  - Anxiety [Unknown]
